FAERS Safety Report 21357920 (Version 1)
Quarter: 2022Q3

REPORT INFORMATION
  Report Type: Other
  Country: IT (occurrence: None)
  Receive Date: 20220921
  Receipt Date: 20220921
  Transmission Date: 20221027
  Serious: Yes (Other)
  Sender: FDA-Public Use
  Company Number: IT-ROCHE-3181328

PATIENT
  Age: 51 Year
  Sex: Male

DRUGS (2)
  1. OCRELIZUMAB [Suspect]
     Active Substance: OCRELIZUMAB
     Indication: Secondary progressive multiple sclerosis
     Dosage: FIRST OCRELIZUMAB DOSE IN JAN/FEB 2019, TWO SEPARATED INFUSIONS OVER TWO WEEKS
     Route: 042
     Dates: start: 2019
  2. OCRELIZUMAB [Suspect]
     Active Substance: OCRELIZUMAB
     Dosage: SIXTH DOSE WAS ADMINISTERED
     Route: 042
     Dates: start: 20210714

REACTIONS (1)
  - Neutropenia [Recovered/Resolved]

NARRATIVE: CASE EVENT DATE: 20210927
